FAERS Safety Report 4842358-5 (Version None)
Quarter: 2005Q4

REPORT INFORMATION
  Report Type: 
  Country: None (occurrence: None)
  Receive Date: 20051125
  Receipt Date: 20051114
  Transmission Date: 20060501
  Serious: Yes (Hospitalization, Other)
  Sender: FDA-Public Use
  Company Number: 2005148215

PATIENT
  Age: 86 Year
  Sex: Male
  Weight: 56.246 kg

DRUGS (7)
  1. XANAX [Suspect]
     Indication: IRRITABLE BOWEL SYNDROME
     Dosage: SEE IMAGE
     Route: 048
     Dates: start: 20051014, end: 20051014
  2. XANAX [Suspect]
     Indication: IRRITABLE BOWEL SYNDROME
     Dosage: SEE IMAGE
     Route: 048
     Dates: start: 19960101
  3. LISINOPRIL [Suspect]
     Indication: BLOOD PRESSURE
     Dosage: 20 MG (20 MG, 1 IN 1 D), ORAL
     Route: 048
     Dates: start: 20040101
  4. CORDARONE [Concomitant]
  5. LIPITOR [Concomitant]
  6. LEVOXYL [Concomitant]
  7. ASPIRIN [Concomitant]

REACTIONS (24)
  - ABDOMINAL PAIN UPPER [None]
  - ABNORMAL DREAMS [None]
  - ANXIETY [None]
  - BALANCE DISORDER [None]
  - BLOOD PRESSURE ABNORMAL [None]
  - CONTUSION [None]
  - DISCOMFORT [None]
  - DIZZINESS [None]
  - DRUG INEFFECTIVE [None]
  - FALL [None]
  - FEELING ABNORMAL [None]
  - GAIT DISTURBANCE [None]
  - HEART RATE INCREASED [None]
  - INSOMNIA [None]
  - JOINT INJURY [None]
  - MENTAL DISORDER [None]
  - MICTURITION URGENCY [None]
  - NERVOUSNESS [None]
  - PALPITATIONS [None]
  - SLEEP DISORDER [None]
  - SOMNOLENCE [None]
  - STOMACH DISCOMFORT [None]
  - THERAPEUTIC RESPONSE UNEXPECTED WITH DRUG SUBSTITUTION [None]
  - WEIGHT INCREASED [None]
